FAERS Safety Report 12147176 (Version 2)
Quarter: 2016Q1

REPORT INFORMATION
  Report Type: Spontaneous
  Country: US (occurrence: US)
  Receive Date: 20160304
  Receipt Date: 20160309
  Transmission Date: 20160526
  Serious: No
  Sender: FDA-Public Use
  Company Number: US-PFIZER INC-2016078565

PATIENT
  Age: 50 Year
  Sex: Female
  Weight: 68.4 kg

DRUGS (2)
  1. AZITHROMYCIN ANHYDROUS. [Suspect]
     Active Substance: AZITHROMYCIN ANHYDROUS
     Indication: COUGH
     Dosage: 500 MG, (250 MG, LITTLE PILL, 2 ON THE FIRST DAY)
     Route: 048
     Dates: start: 20160121, end: 20160121
  2. AZITHROMYCIN ANHYDROUS. [Suspect]
     Active Substance: AZITHROMYCIN ANHYDROUS
     Indication: WHEEZING
     Dosage: 250 MG, (250 MG, LITTLE PILL, 1 FOR NEXT FOUR DAYS)
     Route: 048
     Dates: start: 20160122, end: 20160125

REACTIONS (5)
  - Tinnitus [Not Recovered/Not Resolved]
  - Hypertension [Recovered/Resolved]
  - Nervousness [Recovered/Resolved]
  - Dizziness [Recovered/Resolved]
  - Palpitations [Recovered/Resolved]
